FAERS Safety Report 7248151-0 (Version None)
Quarter: 2011Q1

REPORT INFORMATION
  Report Type: 
  Country: None (occurrence: None)
  Receive Date: 20110127
  Receipt Date: 20110125
  Transmission Date: 20110831
  Serious: Yes (Other)
  Sender: FDA-Public Use
  Company Number: JP-TEVA-261570ISR

PATIENT
  Age: 50 Year
  Sex: Female

DRUGS (2)
  1. CISPLATIN [Suspect]
     Indication: OVARIAN CANCER
     Route: 041
  2. IRINOTECAN HYDROCHLORIDE [Suspect]
     Indication: OVARIAN CANCER
     Route: 041

REACTIONS (1)
  - HEPATITIS B [None]
